FAERS Safety Report 15359220 (Version 2)
Quarter: 2025Q3

REPORT INFORMATION
  Report Type: Report from Study
  Country: EU (occurrence: EU)
  Receive Date: 20180907
  Receipt Date: 20250718
  Transmission Date: 20251021
  Serious: Yes (Death, Hospitalization, Other)
  Sender: AUROBINDO
  Company Number: EU-AUROBINDO-AUR-APL-2018-044228

PATIENT
  Age: 7 Year

DRUGS (2)
  1. ACETAMINOPHEN [Suspect]
     Active Substance: ACETAMINOPHEN
     Indication: Product used for unknown indication
     Route: 048
  2. ACETAMINOPHEN [Suspect]
     Active Substance: ACETAMINOPHEN
     Route: 048

REACTIONS (3)
  - Acute hepatic failure [Fatal]
  - Toxicity to various agents [Fatal]
  - Procalcitonin increased [Unknown]
